FAERS Safety Report 4685403-2 (Version None)
Quarter: 2005Q2

REPORT INFORMATION
  Report Type: 
  Country: None (occurrence: None)
  Receive Date: 20050608
  Receipt Date: 20050528
  Transmission Date: 20051028
  Serious: Yes (Hospitalization)
  Sender: FDA-Public Use
  Company Number: NZ-GLAXOSMITHKLINE-B0382724A

PATIENT
  Age: 18 Year
  Sex: Female

DRUGS (4)
  1. FLUTICASONE PROPIONATE [Suspect]
     Dosage: 1000MCG PER DAY
     Route: 055
     Dates: start: 20050315, end: 20050320
  2. FLUTICASONE PROPIONATE [Suspect]
     Dosage: 2000MCG PER DAY
     Route: 055
     Dates: start: 20050405, end: 20050410
  3. FLUTICASONE PROPIONATE [Suspect]
     Dosage: 50MCG PER DAY
     Route: 055
     Dates: start: 20050503, end: 20050508
  4. FLUTICASONE PROPIONATE [Suspect]
     Dosage: 500MCG PER DAY
     Route: 055
     Dates: start: 20050524, end: 20050528

REACTIONS (8)
  - ABSCESS [None]
  - ABSCESS DRAINAGE [None]
  - ABSCESS LIMB [None]
  - CELLULITIS [None]
  - ERYTHEMA [None]
  - OEDEMA [None]
  - SKIN BACTERIAL INFECTION [None]
  - SUBCUTANEOUS ABSCESS [None]
